FAERS Safety Report 6076698-1 (Version None)
Quarter: 2009Q1

REPORT INFORMATION
  Report Type: 
  Country: None (occurrence: None)
  Receive Date: 20090213
  Receipt Date: 20090206
  Transmission Date: 20090719
  Serious: Yes (Hospitalization)
  Sender: FDA-Public Use
  Company Number: PHHY2009FR04537

PATIENT
  Sex: Female

DRUGS (1)
  1. ACLASTA [Suspect]
     Indication: OSTEOPOROSIS
     Dosage: 5 MG
     Route: 042
     Dates: start: 20090204

REACTIONS (4)
  - HYPERSENSITIVITY [None]
  - INJECTION SITE EXTRAVASATION [None]
  - INJECTION SITE INJURY [None]
  - PARALYSIS [None]
